FAERS Safety Report 8140598-3 (Version None)
Quarter: 2012Q1

REPORT INFORMATION
  Report Type: 
  Country: None (occurrence: None)
  Receive Date: 20120216
  Receipt Date: 20120207
  Transmission Date: 20120608
  Serious: Yes (Disabling)
  Sender: FDA-Public Use
  Company Number: US-SANOFI-AVENTIS-2012SA005823

PATIENT
  Sex: Male

DRUGS (7)
  1. SOLOSTAR [Suspect]
     Indication: DIABETES MELLITUS
  2. ALL OTHER THERAPEUTIC PRODUCTS [Concomitant]
  3. ORAL ANTIDIABETICS [Concomitant]
  4. NOVOLOG [Concomitant]
  5. LANTUS [Suspect]
     Indication: DIABETES MELLITUS
     Dosage: DOSE:45 UNIT(S)
     Route: 058
  6. HUMALOG [Concomitant]
     Dosage: ON A SLIDING SCALE
     Dates: end: 20120202
  7. METFORMIN HCL [Concomitant]

REACTIONS (5)
  - HYPERTENSION [None]
  - BLOOD GLUCOSE INCREASED [None]
  - GUILLAIN-BARRE SYNDROME [None]
  - PARALYSIS [None]
  - WEIGHT INCREASED [None]
